FAERS Safety Report 7519905-8 (Version None)
Quarter: 2011Q2

REPORT INFORMATION
  Report Type: 
  Country: None (occurrence: None)
  Receive Date: 20110602
  Receipt Date: 20110523
  Transmission Date: 20111010
  Serious: Yes (Death)
  Sender: FDA-Public Use
  Company Number: US-ACTELION-A-NJ2010-36781

PATIENT

DRUGS (5)
  1. TRACLEER [Suspect]
     Indication: PULMONARY ARTERIAL HYPERTENSION
     Dosage: UNK
     Route: 048
     Dates: start: 20100331
  2. LASIX [Concomitant]
  3. ASPIRIN [Concomitant]
  4. REVATIO [Concomitant]
  5. COUMADIN [Concomitant]

REACTIONS (5)
  - CONDITION AGGRAVATED [None]
  - OEDEMA PERIPHERAL [None]
  - OXYGEN SATURATION DECREASED [None]
  - FLUID RETENTION [None]
  - DEATH [None]
